FAERS Safety Report 5872751-3 (Version None)
Quarter: 2008Q3

REPORT INFORMATION
  Report Type: 
  Country: None (occurrence: None)
  Receive Date: 20080902
  Receipt Date: 20060127
  Transmission Date: 20090109
  Serious: Yes (Other)
  Sender: FDA-Public Use
  Company Number: 2008AL009349

PATIENT
  Age: 58 Year
  Sex: Male

DRUGS (4)
  1. METOCLOPRAMIDE [Suspect]
     Indication: GASTROOESOPHAGEAL REFLUX DISEASE
     Dosage: 10 MG; TID; PO
     Route: 048
     Dates: start: 20020801
  2. LANSOPRAZOLE [Concomitant]
  3. ALLOPURINOL [Concomitant]
  4. OMEPRAZOLE [Concomitant]

REACTIONS (4)
  - DEPRESSION [None]
  - DISTURBANCE IN ATTENTION [None]
  - LETHARGY [None]
  - MEMORY IMPAIRMENT [None]
